FAERS Safety Report 9219917 (Version 1)
Quarter: 2013Q1

REPORT INFORMATION
  Report Type: Spontaneous
  Country: US (occurrence: None)
  Receive Date: 20120831
  Receipt Date: 20120831
  Transmission Date: 20140127
  Serious: No
  Sender: FDA-Public Use
  Company Number: 1000031331

PATIENT
  Age: 75 Year
  Sex: Female

DRUGS (1)
  1. DALIRESP [Suspect]
     Indication: CHRONIC OBSTRUCTIVE PULMONARY DISEASE
     Route: 048
     Dates: start: 20120609, end: 20120611

REACTIONS (6)
  - Nausea [None]
  - Back pain [None]
  - Headache [None]
  - Influenza like illness [None]
  - Insomnia [None]
  - Decreased appetite [None]
